FAERS Safety Report 8520959-0 (Version None)
Quarter: 2012Q3

REPORT INFORMATION
  Report Type: 
  Country: None (occurrence: None)
  Receive Date: 20120719
  Receipt Date: 20120712
  Transmission Date: 20120928
  Serious: Yes (Other)
  Sender: FDA-Public Use
  Company Number: US-BAYER-2012-070611

PATIENT
  Age: 45 Year
  Sex: Female

DRUGS (6)
  1. IBUPROFEN [Concomitant]
     Dosage: 600 MG, UNK
     Route: 048
  2. APAP W/ CODEINE [Concomitant]
     Dosage: 300 MG, UNK
     Route: 048
  3. VIOXX [Concomitant]
     Dosage: UNK,  50 MG 5 DAYS, FOLLOWED BY 25 MG EVERYDAY
     Route: 048
  4. APAP W/ CODEINE [Concomitant]
     Dosage: 15 MG, UNK
     Route: 048
  5. YASMIN [Suspect]
  6. FLOXIN [Concomitant]
     Dosage: 300 MG, UNK
     Route: 048

REACTIONS (1)
  - DEEP VEIN THROMBOSIS [None]
